FAERS Safety Report 13899798 (Version 3)
Quarter: 2018Q2

REPORT INFORMATION
  Report Type: Report from Study
  Country: None (occurrence: CA)
  Receive Date: 20170824
  Receipt Date: 20180423
  Transmission Date: 20180711
  Serious: Yes (Hospitalization, Other)
  Sender: FDA-Public Use
  Company Number: CA-ABBVIE-17K-028-2053111-00

PATIENT
  Age: 61 Year
  Sex: Male
  Weight: 85.1 kg

DRUGS (5)
  1. MIRTAZAPINE. [Concomitant]
     Active Substance: MIRTAZAPINE
     Indication: PRODUCT USED FOR UNKNOWN INDICATION
     Dates: start: 2016
  2. DICLOFENAC [Concomitant]
     Active Substance: DICLOFENAC
     Indication: PRODUCT USED FOR UNKNOWN INDICATION
     Dosage: PRN
     Route: 061
     Dates: start: 201701
  3. HUMIRA [Suspect]
     Active Substance: ADALIMUMAB
     Route: 058
     Dates: start: 20170130
  4. ACETAMINOPHEN. [Concomitant]
     Active Substance: ACETAMINOPHEN
     Indication: PRODUCT USED FOR UNKNOWN INDICATION
     Dosage: PRN
     Dates: start: 201701
  5. HUMIRA [Suspect]
     Active Substance: ADALIMUMAB
     Indication: PSORIASIS
     Route: 058
     Dates: start: 20160114, end: 201701

REACTIONS (8)
  - Back pain [Recovered/Resolved]
  - Pulmonary embolism [Recovered/Resolved]
  - Post procedural inflammation [Not Recovered/Not Resolved]
  - Dyspnoea [Recovered/Resolved]
  - Arthrodesis [Recovered/Resolved]
  - Pulmonary infarction [Recovered/Resolved]
  - Nail operation [Recovered/Resolved]
  - Nail operation [Recovered/Resolved]

NARRATIVE: CASE EVENT DATE: 20170204
